FAERS Safety Report 22283767 (Version 1)
Quarter: 2023Q2

REPORT INFORMATION
  Report Type: Spontaneous
  Country: US (occurrence: None)
  Receive Date: 20230503
  Receipt Date: 20230503
  Transmission Date: 20230721
  Serious: Yes (Hospitalization)
  Sender: FDA-Public Use
  Company Number: None

PATIENT
  Age: 72 Year
  Sex: Female

DRUGS (8)
  1. AMBRISENTAN [Suspect]
     Active Substance: AMBRISENTAN
     Indication: Pulmonary arterial hypertension
     Dosage: FREQUENCY : DAILY;?
     Route: 048
     Dates: start: 20201028, end: 20230203
  2. SILDENAFIL [Concomitant]
     Active Substance: SILDENAFIL
  3. AZATHIOPRINE [Concomitant]
  4. CITALOPRAM [Concomitant]
     Active Substance: CITALOPRAM HYDROBROMIDE
  5. ATORVASTATIN [Concomitant]
     Active Substance: ATORVASTATIN
  6. MIDODRINE [Concomitant]
     Active Substance: MIDODRINE
  7. OMEPRAZOLE [Concomitant]
  8. GABAPENTIN [Concomitant]

REACTIONS (4)
  - Hypotension [None]
  - Presyncope [None]
  - Right ventricular failure [None]
  - Haemodialysis [None]

NARRATIVE: CASE EVENT DATE: 20230104
